FAERS Safety Report 19166819 (Version 1)
Quarter: 2021Q2

REPORT INFORMATION
  Report Type: Spontaneous
  Country: GB (occurrence: GB)
  Receive Date: 20210421
  Receipt Date: 20210421
  Transmission Date: 20210717
  Serious: Yes (Hospitalization)
  Sender: FDA-Public Use
  Company Number: GB-JNJFOC-20210435378

PATIENT
  Age: 42 Year
  Sex: Female

DRUGS (1)
  1. SIMPONI [Suspect]
     Active Substance: GOLIMUMAB
     Indication: COLITIS ULCERATIVE
     Route: 058

REACTIONS (5)
  - Pleural effusion [Unknown]
  - Off label use [Unknown]
  - Product use issue [Unknown]
  - Lower respiratory tract infection [Unknown]
  - Product dose omission issue [Unknown]
